FAERS Safety Report 7210278-7 (Version None)
Quarter: 2011Q1

REPORT INFORMATION
  Report Type: 
  Country: None (occurrence: None)
  Receive Date: 20110105
  Receipt Date: 20101219
  Transmission Date: 20110831
  Serious: No
  Sender: FDA-Public Use
  Company Number: US-B.I. PHARMACEUTICALS,INC./RIDGEFIELD-2010-BP-14930BP

PATIENT
  Sex: Female

DRUGS (8)
  1. PRAVASTATIN [Concomitant]
     Indication: BLOOD CHOLESTEROL INCREASED
  2. TRIAMTERENE [Concomitant]
     Indication: DIURETIC THERAPY
     Dosage: 37.5 MG
  3. PRADAXA [Suspect]
     Indication: ATRIAL FIBRILLATION
     Dosage: 300 MG
     Route: 048
     Dates: start: 20101210
  4. CARVEDILOL [Concomitant]
     Indication: ATRIAL FIBRILLATION
  5. AROMASIN [Concomitant]
     Indication: BREAST CANCER
  6. GLYBURIDE [Concomitant]
     Indication: DIABETES MELLITUS
  7. LIOTHYRONINE SODIUM [Concomitant]
     Indication: THYROXINE DECREASED
  8. METFORMIN [Concomitant]
     Indication: DIABETES MELLITUS

REACTIONS (5)
  - DIARRHOEA [None]
  - ATRIAL FIBRILLATION [None]
  - ABDOMINAL DISTENSION [None]
  - FLATULENCE [None]
  - NAUSEA [None]
